FAERS Safety Report 23265232 (Version 6)
Quarter: 2025Q3

REPORT INFORMATION
  Report Type: Report from Study
  Country: GB (occurrence: GB)
  Receive Date: 20231206
  Receipt Date: 20250801
  Transmission Date: 20251020
  Serious: Yes (Hospitalization)
  Sender: ROCHE
  Company Number: GB-ROCHE-3406481

PATIENT
  Age: 72 Year
  Sex: Male

DRUGS (1)
  1. TOCILIZUMAB [Suspect]
     Active Substance: TOCILIZUMAB
     Indication: Product used for unknown indication
     Route: 058
     Dates: start: 20200605

REACTIONS (2)
  - Influenza [Unknown]
  - Arthropathy [Unknown]

NARRATIVE: CASE EVENT DATE: 20231208
